FAERS Safety Report 5801426-1 (Version None)
Quarter: 2008Q2

REPORT INFORMATION
  Report Type: 
  Country: None (occurrence: None)
  Receive Date: 20080626
  Receipt Date: 20070821
  Transmission Date: 20081010
  Serious: Yes (Hospitalization)
  Sender: FDA-Public Use
  Company Number: 512670

PATIENT
  Age: 60 Year
  Sex: Female

DRUGS (4)
  1. XELODA [Suspect]
     Indication: PANCREATIC CARCINOMA
     Dosage: 1500 MG 2 PER DAY
  2. COUMADIN [Suspect]
     Indication: DRUG USE FOR UNKNOWN INDICATION
  3. GEMCITABINE [Concomitant]
  4. TAXOTERE [Concomitant]

REACTIONS (2)
  - DRUG INTERACTION [None]
  - GASTROINTESTINAL HAEMORRHAGE [None]
